FAERS Safety Report 6715749-5 (Version None)
Quarter: 2010Q2

REPORT INFORMATION
  Report Type: 
  Country: None (occurrence: None)
  Receive Date: 20100507
  Receipt Date: 20100427
  Transmission Date: 20101027
  Serious: Yes (Life-Threatening, Hospitalization)
  Sender: FDA-Public Use
  Company Number: PL-JNJFOC-20100407805

PATIENT
  Sex: Male

DRUGS (7)
  1. REMICADE [Suspect]
     Indication: RHEUMATOID ARTHRITIS
     Route: 042
  2. CALCORT [Concomitant]
     Indication: RHEUMATOID ARTHRITIS
  3. METHOTREXATE [Concomitant]
     Indication: RHEUMATOID ARTHRITIS
  4. LEVOTHYROXINE SODIUM [Concomitant]
     Indication: HYPOTHYROIDISM
  5. HELICID [Concomitant]
     Indication: SUPPORTIVE CARE
  6. HEPAREGEN [Concomitant]
     Indication: SUPPORTIVE CARE
  7. FOLIC ACID [Concomitant]
     Indication: SUPPORTIVE CARE

REACTIONS (1)
  - AORTIC ANEURYSM RUPTURE [None]
